FAERS Safety Report 8999112 (Version 2)
Quarter: 2013Q3

REPORT INFORMATION
  Report Type: Spontaneous
  Country: CH (occurrence: CH)
  Receive Date: 20130103
  Receipt Date: 20130905
  Transmission Date: 20140515
  Serious: Yes (Other)
  Sender: FDA-Public Use
  Company Number: PHHY2012CH121671

PATIENT
  Age: 39 Year
  Sex: Female
  Weight: 50 kg

DRUGS (1)
  1. SANDIMMUNE NEORAL [Suspect]
     Indication: HEART TRANSPLANT
     Dosage: 16 MG/KG, UNK

REACTIONS (2)
  - Suicidal ideation [Unknown]
  - Intentional overdose [Unknown]
